FAERS Safety Report 5279084-7 (Version None)
Quarter: 2007Q1

REPORT INFORMATION
  Report Type: 
  Country: None (occurrence: None)
  Receive Date: 20070328
  Receipt Date: 20070327
  Transmission Date: 20070707
  Serious: Yes (Other)
  Sender: FDA-Public Use
  Company Number: US-GLAXOSMITHKLINE-A0644016A

PATIENT
  Sex: Female

DRUGS (2)
  1. ECOTRIN ADULT LOW STRENGTH TABLETS [Suspect]
     Indication: DRUG USE FOR UNKNOWN INDICATION
  2. KEPPRA [Suspect]
     Indication: DRUG USE FOR UNKNOWN INDICATION
     Route: 065

REACTIONS (2)
  - ANAL HAEMORRHAGE [None]
  - DRUG INTERACTION [None]
